FAERS Safety Report 7832857-6 (Version None)
Quarter: 2011Q4

REPORT INFORMATION
  Report Type: 
  Country: None (occurrence: None)
  Receive Date: 20111024
  Receipt Date: 20111018
  Transmission Date: 20120403
  Serious: No
  Sender: FDA-Public Use
  Company Number: US-BIOGENIDEC-2011BI039858

PATIENT
  Age: 41 Year
  Sex: Female

DRUGS (3)
  1. AVONEX [Suspect]
     Indication: MULTIPLE SCLEROSIS
     Route: 030
     Dates: start: 20040517, end: 20060101
  2. AVONEX [Suspect]
     Route: 030
     Dates: start: 20060101
  3. TYLENOL-500 [Concomitant]
     Indication: PREMEDICATION

REACTIONS (4)
  - INJECTION SITE HAEMORRHAGE [None]
  - INFLUENZA LIKE ILLNESS [None]
  - PALPITATIONS [None]
  - INJECTION SITE EXTRAVASATION [None]
